FAERS Safety Report 16268821 (Version 1)
Quarter: 2019Q2

REPORT INFORMATION
  Report Type: Spontaneous
  Country: JP (occurrence: JP)
  Receive Date: 20190503
  Receipt Date: 20190503
  Transmission Date: 20190711
  Serious: Yes (Other)
  Sender: FDA-Public Use
  Company Number: JP-ACTELION-A-CH2018-179549

PATIENT
  Age: 12 Year
  Sex: Female

DRUGS (8)
  1. UPTRAVI [Suspect]
     Active Substance: SELEXIPAG
     Indication: PULMONARY ARTERIAL HYPERTENSION
     Dosage: 0.2 MG, QD
     Route: 048
     Dates: start: 20170810
  2. WARFARIN [Concomitant]
     Active Substance: WARFARIN
  3. OXYGEN. [Concomitant]
     Active Substance: OXYGEN
  4. OPSUMIT [Suspect]
     Active Substance: MACITENTAN
     Indication: PULMONARY ARTERIAL HYPERTENSION
     Dosage: 5 MG, QD
     Route: 048
     Dates: start: 20180816, end: 20181227
  5. ADCIRCA [Suspect]
     Active Substance: TADALAFIL
     Indication: PULMONARY ARTERIAL HYPERTENSION
     Dosage: 10 MG, QD
     Route: 048
     Dates: start: 20110908
  6. OPSUMIT [Suspect]
     Active Substance: MACITENTAN
     Dosage: 7.5 MG, QD
     Route: 048
     Dates: start: 20181228
  7. UPTRAVI [Suspect]
     Active Substance: SELEXIPAG
     Dosage: 2 MG, QD
     Route: 048
  8. ADCIRCA [Suspect]
     Active Substance: TADALAFIL
     Dosage: 30 MG, QD
     Route: 048

REACTIONS (9)
  - Hepatic function abnormal [Recovering/Resolving]
  - Tachycardia [Unknown]
  - Basedow^s disease [Unknown]
  - Gamma-glutamyltransferase increased [Recovering/Resolving]
  - Hyperthyroidism [Unknown]
  - Thyroid function test abnormal [Unknown]
  - Alanine aminotransferase increased [Recovering/Resolving]
  - Aspartate aminotransferase increased [Recovering/Resolving]
  - Cervix enlargement [Unknown]

NARRATIVE: CASE EVENT DATE: 20180913
